FAERS Safety Report 5147627-X (Version None)
Quarter: 2006Q4

REPORT INFORMATION
  Report Type: 
  Country: None (occurrence: None)
  Receive Date: 20061110
  Receipt Date: 20060922
  Transmission Date: 20070319
  Serious: Yes (Other)
  Sender: FDA-Public Use
  Company Number: LU-JNJFOC-20061101826

PATIENT
  Age: 79 Year
  Sex: Female

DRUGS (1)
  1. CAELYX [Suspect]
     Indication: ENDOMETRIAL CANCER
     Route: 042

REACTIONS (5)
  - BACK PAIN [None]
  - ERYTHEMA [None]
  - INFUSION RELATED REACTION [None]
  - INTRACRANIAL PRESSURE INCREASED [None]
  - PAIN IN EXTREMITY [None]
